FAERS Safety Report 10042657 (Version 2)
Quarter: 2014Q2

REPORT INFORMATION
  Report Type: Spontaneous
  Country: US (occurrence: US)
  Receive Date: 20140327
  Receipt Date: 20140630
  Transmission Date: 20141212
  Serious: Yes (Death, Other)
  Sender: FDA-Public Use
  Company Number: US-GILEAD-2014-0097932

PATIENT
  Sex: Male

DRUGS (12)
  1. LETAIRIS [Suspect]
     Indication: PULMONARY HYPERTENSION
     Route: 065
     Dates: start: 20120508, end: 20140321
  2. LETAIRIS [Suspect]
     Indication: SYSTEMIC LUPUS ERYTHEMATOSUS
  3. REMODULIN [Concomitant]
  4. IRON [Concomitant]
  5. REMERON [Concomitant]
  6. MORPHINE SULFATE [Concomitant]
  7. ADVIL                              /00044201/ [Concomitant]
  8. PRAVASTATIN [Concomitant]
  9. POTASSIUM CHLORIDE [Concomitant]
  10. SPIRIVA [Concomitant]
  11. FUROSEMIDE [Concomitant]
  12. DIGOXIN [Concomitant]

REACTIONS (1)
  - Pulmonary hypertension [Fatal]
